FAERS Safety Report 23606835 (Version 1)
Quarter: 2024Q1

REPORT INFORMATION
  Report Type: Spontaneous
  Country: US (occurrence: None)
  Receive Date: 20240307
  Receipt Date: 20240307
  Transmission Date: 20240409
  Serious: Yes (Other)
  Sender: FDA-Public Use
  Company Number: None

PATIENT
  Age: 73 Year
  Sex: Female
  Weight: 69.75 kg

DRUGS (5)
  1. SKYRIZI [Suspect]
     Active Substance: RISANKIZUMAB-RZAA
     Indication: Crohn^s disease
     Dosage: 1 INJECTION EVERY TWO MONTHS SUBCUTANEOUS
     Route: 058
     Dates: start: 20230425
  2. LEVOTHYROXINE [Concomitant]
     Active Substance: LEVOTHYROXINE\LEVOTHYROXINE SODIUM
  3. VITAMIN D NOS [Concomitant]
     Active Substance: VITAMIN D NOS
  4. MAGNESIUM [Concomitant]
     Active Substance: MAGNESIUM
  5. BIOTIN [Concomitant]
     Active Substance: BIOTIN

REACTIONS (1)
  - Seborrhoeic dermatitis [None]

NARRATIVE: CASE EVENT DATE: 20231103
